FAERS Safety Report 7057911-0 (Version None)
Quarter: 2010Q4

REPORT INFORMATION
  Report Type: 
  Country: None (occurrence: None)
  Receive Date: 20101022
  Receipt Date: 20100930
  Transmission Date: 20110411
  Serious: Yes (Hospitalization)
  Sender: FDA-Public Use
  Company Number: US-BAYER-201036852NA

PATIENT
  Age: 40 Year
  Sex: Female
  Weight: 61 kg

DRUGS (7)
  1. YAZ [Suspect]
     Indication: CONTRACEPTION
     Route: 048
     Dates: start: 20001201, end: 20080101
  2. YASMIN [Suspect]
     Indication: CONTRACEPTION
     Route: 048
     Dates: start: 20001201, end: 20080101
  3. WELLBUTRIN [Concomitant]
  4. LAMICTAL [Concomitant]
  5. ZOLOFT [Concomitant]
  6. XANAX [Concomitant]
  7. VICODIN [Concomitant]
     Indication: PAIN
     Dates: start: 20080928

REACTIONS (6)
  - ABDOMINAL PAIN UPPER [None]
  - CHOLECYSTITIS CHRONIC [None]
  - CHOLELITHIASIS [None]
  - DIARRHOEA [None]
  - NAUSEA [None]
  - VOMITING [None]
